FAERS Safety Report 21593418 (Version 1)
Quarter: 2022Q4

REPORT INFORMATION
  Report Type: Spontaneous
  Country: US (occurrence: None)
  Receive Date: 20221114
  Receipt Date: 20221114
  Transmission Date: 20230113
  Serious: Yes (Other)
  Sender: FDA-Public Use
  Company Number: None

PATIENT
  Sex: Male
  Weight: 100.2 kg

DRUGS (1)
  1. PHENYTOIN [Suspect]
     Active Substance: PHENYTOIN
     Dosage: OTHER FREQUENCY : NIGHTLY;?
     Route: 048

REACTIONS (4)
  - Muscle twitching [None]
  - Disorientation [None]
  - Muscle twitching [None]
  - Product substitution issue [None]
